FAERS Safety Report 13767405 (Version 2)
Quarter: 2024Q2

REPORT INFORMATION
  Report Type: Spontaneous
  Country: US (occurrence: US)
  Receive Date: 20170719
  Receipt Date: 20240523
  Transmission Date: 20240715
  Serious: No
  Sender: FDA-Public Use
  Company Number: US-BIOGEN-2017BI00431919

PATIENT
  Age: 37 Year
  Sex: Male

DRUGS (1)
  1. SPINRAZA [Suspect]
     Active Substance: NUSINERSEN
     Indication: Spinal muscular atrophy
     Route: 050
     Dates: start: 20170529

REACTIONS (3)
  - Post lumbar puncture syndrome [Recovered/Resolved]
  - Flatulence [Recovered/Resolved]
  - Procedural vomiting [Unknown]

NARRATIVE: CASE EVENT DATE: 20170529
